FAERS Safety Report 18562894 (Version 7)
Quarter: 2021Q2

REPORT INFORMATION
  Report Type: Spontaneous
  Country: PL (occurrence: PL)
  Receive Date: 20201130
  Receipt Date: 20210504
  Transmission Date: 20210717
  Serious: Yes (Life-Threatening, Hospitalization, Other)
  Sender: FDA-Public Use
  Company Number: PL-AUROBINDO-AUR-APL-2020-058868

PATIENT
  Age: 43 Year
  Sex: Male

DRUGS (15)
  1. DASATINIB. [Suspect]
     Active Substance: DASATINIB
     Dosage: 50 MILLIGRAM, ONCE A DAY
     Route: 065
     Dates: start: 201611, end: 201705
  2. PREDNISONE. [Concomitant]
     Active Substance: PREDNISONE
     Indication: CHRONIC MYELOID LEUKAEMIA
     Dosage: 20 MILLIGRAM, ONCE A DAY
     Route: 065
  3. DASATINIB. [Suspect]
     Active Substance: DASATINIB
     Dosage: UNK
     Route: 048
     Dates: start: 201611, end: 201705
  4. DASATINIB. [Suspect]
     Active Substance: DASATINIB
     Dosage: 50 MILLIGRAM, ONCE A DAY
     Route: 048
     Dates: start: 2014, end: 201605
  5. HYDROXYUREA. [Suspect]
     Active Substance: HYDROXYUREA
     Indication: PRODUCT USED FOR UNKNOWN INDICATION
     Dosage: UNK
     Route: 065
  6. PONATINIB [Concomitant]
     Active Substance: PONATINIB
     Dosage: 45 MILLIGRAM, ONCE A DAY
     Route: 065
     Dates: start: 201705
  7. IMATINIB. [Suspect]
     Active Substance: IMATINIB MESYLATE
     Indication: CHRONIC MYELOID LEUKAEMIA
     Dosage: 400 MILLIGRAM, ONCE A DAY
     Route: 065
     Dates: start: 201210, end: 201307
  8. DASATINIB. [Suspect]
     Active Substance: DASATINIB
     Dosage: UNK, ALTERNATING BETWEEN DOSES OF 50 MG/DAY AND 100 MG/DAY
     Route: 048
     Dates: start: 201409, end: 2014
  9. HYDROXYCARBAMIDE [Suspect]
     Active Substance: HYDROXYUREA
     Indication: CHRONIC MYELOID LEUKAEMIA
     Dosage: UNK
     Route: 065
  10. DASATINIB. [Suspect]
     Active Substance: DASATINIB
     Dosage: UNK
     Route: 048
     Dates: start: 201307, end: 201408
  11. DASATINIB. [Suspect]
     Active Substance: DASATINIB
     Dosage: UNK
     Route: 048
     Dates: start: 2016, end: 2016
  12. PONATINIB [Concomitant]
     Active Substance: PONATINIB
     Indication: CHRONIC MYELOID LEUKAEMIA
     Dosage: 15 MILLIGRAM, ONCE A DAY
     Route: 065
  13. CYTARABINE. [Suspect]
     Active Substance: CYTARABINE
     Indication: CHRONIC MYELOID LEUKAEMIA
     Dosage: UNK
     Route: 058
  14. DASATINIB. [Suspect]
     Active Substance: DASATINIB
     Indication: CHRONIC MYELOID LEUKAEMIA
     Dosage: 100 MILLIGRAM, ONCE A DAY
     Route: 048
     Dates: start: 201307, end: 201408
  15. DASATINIB. [Suspect]
     Active Substance: DASATINIB
     Dosage: UNK
     Route: 048
     Dates: start: 2014, end: 201605

REACTIONS (14)
  - Pulmonary tuberculosis [Recovered/Resolved]
  - Therapeutic product effect incomplete [Unknown]
  - Pneumonia [Recovered/Resolved]
  - Toxicity to various agents [Unknown]
  - Thrombocytopenia [Recovered/Resolved]
  - Bacterial sepsis [Recovering/Resolving]
  - Sepsis [Recovered/Resolved]
  - Acquired gene mutation [Unknown]
  - Drug resistance [Unknown]
  - Lung opacity [Unknown]
  - Pleural effusion [Recovering/Resolving]
  - Treatment failure [Recovered/Resolved]
  - Loss of therapeutic response [Recovered/Resolved]
  - Therapeutic response decreased [Unknown]

NARRATIVE: CASE EVENT DATE: 201305
